FAERS Safety Report 5588504-X (Version None)
Quarter: 2008Q1

REPORT INFORMATION
  Report Type: 
  Country: None (occurrence: None)
  Receive Date: 20080111
  Receipt Date: 20080103
  Transmission Date: 20080703
  Serious: Yes (Other)
  Sender: FDA-Public Use
  Company Number: US-ROCHE-526885

PATIENT
  Age: 65 Year
  Sex: Female

DRUGS (7)
  1. BONIVA [Suspect]
     Indication: OSTEOPOROSIS
     Dosage: DOSE REPORTED AS 3 MG/ 3 ML, PATIENT TOOK 2 INJECTIONS (FIRST ONE ON 09 JULY 2007 AND SECOND ONE ON+
     Route: 042
     Dates: start: 20070709, end: 20071008
  2. NEXIUM [Concomitant]
  3. ZANTAC [Concomitant]
  4. DONNATAL [Concomitant]
     Dosage: DRUG REPORTED AS 'DONNATOL EXTEND TABS'
  5. SYNTHROID [Concomitant]
     Dosage: ON APPROXIMATELY 12 SEPTMEBER 2007, SYNTHROID DOSAGE WAS INCREASED
  6. ALLEGRA [Concomitant]
  7. LORAZEPAM [Concomitant]

REACTIONS (6)
  - ABDOMINAL PAIN [None]
  - ABDOMINAL PAIN UPPER [None]
  - EAR INFECTION [None]
  - INFLUENZA LIKE ILLNESS [None]
  - NAUSEA [None]
  - VITAMIN D DECREASED [None]
